FAERS Safety Report 16357676 (Version 1)
Quarter: 2019Q2

REPORT INFORMATION
  Report Type: Spontaneous
  Country: JP (occurrence: JP)
  Receive Date: 20190527
  Receipt Date: 20190527
  Transmission Date: 20190711
  Serious: Yes (Other)
  Sender: FDA-Public Use
  Company Number: JP-AMGEN-JPNSP2019083628

PATIENT

DRUGS (1)
  1. RANMARK [Suspect]
     Active Substance: DENOSUMAB
     Indication: BONE GIANT CELL TUMOUR
     Dosage: 120 MG, MONTHLY, LOADING DOSES ON 8 AND 15 DAYS
     Route: 058

REACTIONS (3)
  - Extraskeletal ossification [Recovered/Resolved]
  - Joint range of motion decreased [Recovered/Resolved]
  - Bone lesion [Recovered/Resolved]
